FAERS Safety Report 16271459 (Version 2)
Quarter: 2019Q3

REPORT INFORMATION
  Report Type: Spontaneous
  Country: US (occurrence: US)
  Receive Date: 20190503
  Receipt Date: 20190815
  Transmission Date: 20191004
  Serious: Yes (Disabling, Other)
  Sender: FDA-Public Use
  Company Number: US-REGENERON PHARMACEUTICALS, INC.-2019-21350

PATIENT

DRUGS (2)
  1. EYLEA [Suspect]
     Active Substance: AFLIBERCEPT
     Indication: DIABETIC RETINAL OEDEMA
     Dosage: 2 MG, 0.05 ML, OD, EVERY 2 MONTHS
     Route: 031
     Dates: start: 20150824
  2. EYLEA [Suspect]
     Active Substance: AFLIBERCEPT
     Dosage: 2 MG, 0.05 ML, OD, EVERY 2 MONTHS, LAST DOSE PRIOR TO EVENT
     Route: 031
     Dates: start: 20190225, end: 20190225

REACTIONS (2)
  - Endophthalmitis [Recovered/Resolved]
  - Blindness transient [Recovered/Resolved]

NARRATIVE: CASE EVENT DATE: 20190225
